FAERS Safety Report 10181646 (Version 1)
Quarter: 2014Q2

REPORT INFORMATION
  Report Type: Report from Study
  Country: US (occurrence: US)
  Receive Date: 20140519
  Receipt Date: 20140519
  Transmission Date: 20141212
  Serious: Yes (Hospitalization, Other)
  Sender: FDA-Public Use
  Company Number: US-ABBVIE-14P-163-1236832-00

PATIENT
  Age: 65 Year
  Sex: Female

DRUGS (6)
  1. HUMIRA [Suspect]
     Indication: COLITIS ULCERATIVE
     Route: 058
     Dates: start: 20140314
  2. HUMIRA [Suspect]
     Route: 058
     Dates: start: 20140511
  3. AZATHIOPRINE [Suspect]
     Indication: HAEMORRHAGE
     Dates: start: 201404
  4. LUMIGAN [Concomitant]
     Indication: GLAUCOMA
     Dosage: 1 GGT EACH EYE DAILY
     Route: 047
  5. SYNTHROID [Concomitant]
     Indication: THYROIDECTOMY
  6. BENICAR [Concomitant]
     Indication: HYPERTENSION
     Dosage: 1/2 TAB 20MG

REACTIONS (12)
  - Rhinorrhoea [Recovered/Resolved]
  - Gastrointestinal haemorrhage [Recovered/Resolved]
  - Pancreatitis [Recovered/Resolved]
  - Pancreatic enzymes increased [Recovered/Resolved]
  - Bronchitis [Recovered/Resolved]
  - Pyrexia [Recovered/Resolved]
  - Haemorrhage [Recovered/Resolved]
  - Muscle spasms [Recovered/Resolved]
  - Defaecation urgency [Recovered/Resolved]
  - Abdominal tenderness [Recovered/Resolved]
  - C-reactive protein increased [Unknown]
  - Rhinorrhoea [Recovered/Resolved]
